FAERS Safety Report 10144052 (Version 2)
Quarter: 2014Q2

REPORT INFORMATION
  Report Type: Spontaneous
  Country: US (occurrence: US)
  Receive Date: 20140430
  Receipt Date: 20140528
  Transmission Date: 20141212
  Serious: Yes (Other)
  Sender: FDA-Public Use
  Company Number: US-PFIZER INC-2014119375

PATIENT
  Age: 88 Year
  Sex: Female
  Weight: 68 kg

DRUGS (6)
  1. ESTRING [Suspect]
     Indication: BLADDER PROLAPSE
     Dosage: 2 MG, EVERY 3 MONTHS
     Route: 067
     Dates: start: 2004
  2. ESTRING [Suspect]
     Indication: ATROPHIC VULVOVAGINITIS
  3. ESTRING [Suspect]
     Indication: URINARY TRACT INFECTION
  4. ESTRING [Suspect]
     Indication: SEPSIS
  5. CIPROFLOXACIN [Concomitant]
     Dosage: UNK
  6. DONEPEZIL [Concomitant]
     Dosage: UNK

REACTIONS (1)
  - Dementia Alzheimer^s type [Unknown]
